FAERS Safety Report 9563872 (Version 1)
Quarter: 2013Q3

REPORT INFORMATION
  Report Type: Spontaneous
  Country: US (occurrence: None)
  Receive Date: 20130926
  Receipt Date: 20130926
  Transmission Date: 20140515
  Serious: No
  Sender: FDA-Public Use
  Company Number: None

PATIENT
  Age: 62 Year
  Sex: Female
  Weight: 45.36 kg

DRUGS (1)
  1. HYDROCORTISONE [Suspect]
     Indication: BURSITIS
     Dates: start: 20130920

REACTIONS (3)
  - Asthenia [None]
  - Condition aggravated [None]
  - Activities of daily living impaired [None]
